FAERS Safety Report 9416120 (Version 1)
Quarter: 2013Q3

REPORT INFORMATION
  Report Type: Spontaneous
  Country: US (occurrence: None)
  Receive Date: 20130717
  Receipt Date: 20130717
  Transmission Date: 20140515
  Serious: Yes (Other)
  Sender: FDA-Public Use
  Company Number: ENTC2013-0255

PATIENT
  Age: 67 Year
  Sex: Male

DRUGS (12)
  1. STALEVO (LEVODOPA, CARBIDOPA, ENTACAPONE) [Suspect]
     Indication: PARKINSON^S DISEASE
     Dosage: STRENGHT: 200/50/200 MG
  2. CARBIDOPA LEVODOPA (LEVODOPA) [Concomitant]
  3. REQUIP (ROPINIROLE HYDROCHLORIDE) [Concomitant]
  4. LEVOTHYROXINE (LEVOTHYROXINE) [Concomitant]
  5. DOXYCYCLINE (DOXYCYCLINE) [Concomitant]
  6. POTASSIUM (POTASSIUM) [Concomitant]
  7. LASIX (FUROSEMIDE) [Concomitant]
  8. XANAX (ALPRAZOLAM) [Concomitant]
  9. FLOMAX// TAMSULOSIN HYDROCHLORIDE (MORNIFLUMATE) [Concomitant]
  10. CARITIN-D (PSEUDOEPHENDRINE SULFATE) [Concomitant]
  11. MULTIVITAMINS NOS (VITAMINS NOS) [Concomitant]
  12. DOCUSATE SODIUM (DOCUSATE SODIUM) [Concomitant]

REACTIONS (4)
  - Drug ineffective [None]
  - Product quality issue [None]
  - Mobility decreased [None]
  - Drug administration error [None]
